FAERS Safety Report 10962291 (Version 2)
Quarter: 2015Q2

REPORT INFORMATION
  Report Type: Spontaneous
  Country: US (occurrence: US)
  Receive Date: 20150327
  Receipt Date: 20150520
  Transmission Date: 20150821
  Serious: Yes (Hospitalization, Disabling, Other)
  Sender: FDA-Public Use
  Company Number: US-009507513-1503USA012430

PATIENT
  Sex: Female
  Weight: 47.17 kg

DRUGS (5)
  1. FOSAMAX [Suspect]
     Active Substance: ALENDRONATE SODIUM
     Indication: PROPHYLAXIS
     Dosage: 70 MG, WEEKLY
     Route: 048
     Dates: start: 20020224, end: 2011
  2. ALENDRONATE SODIUM. [Suspect]
     Active Substance: ALENDRONATE SODIUM
     Dosage: 70 MG, UNK
     Dates: start: 20080225, end: 20110416
  3. VITAMINS (UNSPECIFIED) [Concomitant]
     Active Substance: VITAMINS
     Dosage: DAILY
     Dates: start: 1975
  4. FOSAMAX [Suspect]
     Active Substance: ALENDRONATE SODIUM
     Indication: OSTEOPOROSIS
     Dosage: UNK
     Route: 048
     Dates: start: 1996
  5. CALCIUM (UNSPECIFIED) [Concomitant]
     Active Substance: CALCIUM
     Dosage: DAILY
     Dates: start: 1975

REACTIONS (20)
  - Open reduction of fracture [Unknown]
  - Parathyroidectomy [Unknown]
  - Anxiety [Unknown]
  - Osteoarthritis [Unknown]
  - Extraskeletal ossification [Unknown]
  - Parathyroid gland operation [Unknown]
  - Tonsillectomy [Unknown]
  - Muscle spasms [Unknown]
  - Removal of internal fixation [Unknown]
  - Mastectomy [Unknown]
  - Femur fracture [Recovered/Resolved]
  - Low turnover osteopathy [Unknown]
  - Infection [Unknown]
  - Piriformis syndrome [Unknown]
  - Patella fracture [Unknown]
  - Fall [Unknown]
  - Rosacea [Unknown]
  - Gastrooesophageal reflux disease [Unknown]
  - Depression [Unknown]
  - Headache [Unknown]

NARRATIVE: CASE EVENT DATE: 2002
